FAERS Safety Report 9790688 (Version 2)
Quarter: 2014Q2

REPORT INFORMATION
  Report Type: Spontaneous
  Country: US (occurrence: US)
  Receive Date: 20131231
  Receipt Date: 20140527
  Transmission Date: 20141212
  Serious: Yes (Hospitalization, Other)
  Sender: FDA-Public Use
  Company Number: US-PFIZER INC-2013373670

PATIENT
  Age: 57 Year
  Sex: Male
  Weight: 127 kg

DRUGS (21)
  1. LYRICA [Suspect]
     Indication: NEURALGIA
     Dosage: 75 MG, 2X/DAY
  2. PROCARDIA XL [Suspect]
     Indication: CARDIAC DISORDER
     Dosage: 60 MG, DAILY
     Dates: start: 2012
  3. PROCARDIA XL [Suspect]
     Indication: BLOOD PRESSURE
  4. PACERONE [Concomitant]
     Dosage: 200 MG, DAILY
  5. SPIRIVA [Concomitant]
     Indication: CHRONIC OBSTRUCTIVE PULMONARY DISEASE
     Dosage: UNK, DAILY
  6. DULERA [Concomitant]
     Indication: CHRONIC OBSTRUCTIVE PULMONARY DISEASE
     Dosage: UNK, 2X/DAY
  7. PRILOSEC [Concomitant]
     Indication: GASTROOESOPHAGEAL REFLUX DISEASE
     Dosage: 20.6 MG, DAILY
  8. PANTOPRAZOLE SODIUM [Concomitant]
     Indication: DYSPEPSIA
     Dosage: 40 MG, DAILY
  9. ISOSORBIDE MONONITRATE [Concomitant]
     Indication: CARDIAC DISORDER
     Dosage: 30 MG, DAILY
  10. TRICOR [Concomitant]
     Indication: BLOOD TRIGLYCERIDES
     Dosage: 145 MG, DAILY
  11. ASPIRIN [Concomitant]
     Indication: CARDIAC DISORDER
     Dosage: 325 MG, DAILY
  12. VITAMIN D [Concomitant]
     Indication: BONE DISORDER
     Dosage: 1000 MG, DAILY
  13. LOSARTAN [Concomitant]
     Indication: HYPERTENSION
     Dosage: 50 MG, DAILY
  14. GLIPIZIDE [Concomitant]
     Indication: DIABETES MELLITUS
     Dosage: 5 MG, DAILY
  15. DILTIAZEM [Concomitant]
     Indication: CARDIAC DISORDER
     Dosage: 60 MG, 4X/DAY
  16. FUROSEMIDE [Concomitant]
     Dosage: 40 MG, DAILY
  17. CYCLOBENZAPRINE [Concomitant]
     Indication: MUSCLE SPASMS
     Dosage: 10 MG, DAILY
  18. WARFARIN [Concomitant]
     Indication: CARDIAC DISORDER
     Dosage: 5 MG, DAILY
  19. METOPROLOL [Concomitant]
     Indication: CARDIAC DISORDER
     Dosage: 50 MG, DAILY
  20. METOPROLOL [Concomitant]
     Indication: HYPERTENSION
  21. ZOLPIDEM [Concomitant]
     Indication: SLEEP DISORDER
     Dosage: 10 MG, DAILY

REACTIONS (2)
  - Myocardial infarction [Unknown]
  - Depression [Unknown]
